FAERS Safety Report 6940622-7 (Version None)
Quarter: 2010Q3

REPORT INFORMATION
  Report Type: 
  Country: None (occurrence: None)
  Receive Date: 20100820
  Receipt Date: 20100804
  Transmission Date: 20110219
  Serious: Yes (Death)
  Sender: FDA-Public Use
  Company Number: LEO-2010-00724

PATIENT
  Age: 69 Year
  Sex: Male

DRUGS (1)
  1. INNOHEP [Suspect]
     Indication: ANTICOAGULANT THERAPY

REACTIONS (3)
  - HAEMOGLOBIN DECREASED [None]
  - HYDROCEPHALUS [None]
  - TUMOUR HAEMORRHAGE [None]
